FAERS Safety Report 14249837 (Version 1)
Quarter: 2017Q4

REPORT INFORMATION
  Report Type: Spontaneous
  Country: US (occurrence: US)
  Receive Date: 20171204
  Receipt Date: 20171204
  Transmission Date: 20180321
  Serious: Yes (Disabling)
  Sender: FDA-Public Use
  Company Number: None

PATIENT
  Age: 84 Year
  Sex: Female
  Weight: 58.5 kg

DRUGS (5)
  1. LEVAQUIN [Suspect]
     Active Substance: LEVOFLOXACIN
     Indication: ANTIBIOTIC THERAPY
     Dates: start: 20171016, end: 20171022
  2. VITAMIN D3 [Concomitant]
     Active Substance: CHOLECALCIFEROL
  3. COD-LIVER OIL [Concomitant]
     Active Substance: FISH OIL
  4. JOINT COMPLEX 4000 [Concomitant]
  5. MULTIVITAMIN FOR WOMEN OVER 50 [Concomitant]

REACTIONS (6)
  - Synovial cyst [None]
  - Peripheral swelling [None]
  - Ligament sprain [None]
  - Pain in extremity [None]
  - Arthropathy [None]
  - Joint swelling [None]

NARRATIVE: CASE EVENT DATE: 20171106
